FAERS Safety Report 24966396 (Version 1)
Quarter: 2025Q1

REPORT INFORMATION
  Report Type: Spontaneous
  Country: FR (occurrence: FR)
  Receive Date: 20250213
  Receipt Date: 20250213
  Transmission Date: 20250409
  Serious: Yes (Hospitalization, Disabling)
  Sender: MERCK SHARP & DOHME LLC
  Company Number: None

PATIENT
  Age: 76 Year
  Sex: Male

DRUGS (15)
  1. FIDAXOMICIN [Suspect]
     Active Substance: FIDAXOMICIN
     Indication: Clostridium difficile infection
     Dosage: STRENGTH: 5
     Route: 048
     Dates: start: 20241229, end: 20250104
  2. POLYETHYLENE GLYCOLS [Suspect]
     Active Substance: POLYETHYLENE GLYCOLS
     Indication: Constipation
     Route: 048
     Dates: end: 20250102
  3. PERINDOPRIL [Suspect]
     Active Substance: PERINDOPRIL
     Indication: Hypertension
     Route: 048
     Dates: end: 20250102
  4. DULOXETINE [Concomitant]
     Active Substance: DULOXETINE
     Route: 065
  5. Xerplion [Concomitant]
     Dosage: STRENGTH: 100
     Route: 065
  6. MINERAL OIL [Suspect]
     Active Substance: MINERAL OIL
     Indication: Constipation
     Route: 048
     Dates: end: 20250102
  7. RISPERDAL [Concomitant]
     Active Substance: RISPERIDONE
     Route: 065
  8. XULTOPHY 100/3.6 [Concomitant]
     Active Substance: INSULIN DEGLUDEC\LIRAGLUTIDE
     Route: 065
  9. RISPERIDONE [Concomitant]
     Active Substance: RISPERIDONE
  10. OLANZAPINE [Concomitant]
     Active Substance: OLANZAPINE
  11. METFORMIN [Concomitant]
     Active Substance: METFORMIN HYDROCHLORIDE
     Dates: start: 20250102
  12. LEVOTHYROXINE [Concomitant]
     Active Substance: LEVOTHYROXINE
  13. OXAZEPAM [Concomitant]
     Active Substance: OXAZEPAM
     Dosage: STRENGTH: 10, 1 IN THE MORNING AND 50 1/2 IN THE EVENING
  14. SITAGLIPTIN PHOSPHATE [Concomitant]
     Active Substance: SITAGLIPTIN PHOSPHATE
     Route: 048
  15. PREGABALIN [Concomitant]
     Active Substance: PREGABALIN

REACTIONS (1)
  - Renal failure [Recovered/Resolved with Sequelae]

NARRATIVE: CASE EVENT DATE: 20250102
